FAERS Safety Report 8281092-9 (Version None)
Quarter: 2012Q2

REPORT INFORMATION
  Report Type: 
  Country: None (occurrence: None)
  Receive Date: 20120413
  Receipt Date: 20120409
  Transmission Date: 20120825
  Serious: Yes (Other)
  Sender: FDA-Public Use
  Company Number: US-AMGEN-USASP2012022232

PATIENT
  Sex: Male
  Weight: 76.6 kg

DRUGS (7)
  1. METFORMIN HCL [Concomitant]
  2. LIPITOR [Concomitant]
     Dosage: 1 MG, UNK
  3. AVODART [Concomitant]
  4. LISINOPRIL [Concomitant]
  5. NORVASC [Concomitant]
     Dosage: 1 MG, UNK
  6. NPLATE [Suspect]
     Indication: IDIOPATHIC THROMBOCYTOPENIC PURPURA
     Dates: start: 20120301
  7. STARLIX [Concomitant]

REACTIONS (1)
  - PLATELET COUNT DECREASED [None]
